FAERS Safety Report 6169298-6 (Version None)
Quarter: 2009Q2

REPORT INFORMATION
  Report Type: 
  Country: None (occurrence: None)
  Receive Date: 20090424
  Receipt Date: 20090408
  Transmission Date: 20091009
  Serious: Yes (Hospitalization, Disabling)
  Sender: FDA-Public Use
  Company Number: SPV1-2009-00642

PATIENT
  Sex: Female

DRUGS (8)
  1. DAYTRANA [Suspect]
     Dosage: 30 MG+ 15 MG DAILY, TRANSDERMAL
     Route: 062
     Dates: end: 20090401
  2. KLONOPIN [Concomitant]
  3. SEROQUEL [Concomitant]
  4. AMBIEN [Concomitant]
  5. VISTARIL /00058402/ (HYDROXYZINE HYDROCHLORIDE) [Concomitant]
  6. LAMICTAL [Concomitant]
  7. RISPERDAL [Concomitant]
  8. REQUIP [Concomitant]

REACTIONS (4)
  - MENTAL DISORDER [None]
  - OFF LABEL USE [None]
  - OVERDOSE [None]
  - TREATMENT NONCOMPLIANCE [None]
